FAERS Safety Report 7343651-7 (Version None)
Quarter: 2011Q1

REPORT INFORMATION
  Report Type: 
  Country: None (occurrence: None)
  Receive Date: 20110310
  Receipt Date: 20100907
  Transmission Date: 20110831
  Serious: No
  Sender: FDA-Public Use
  Company Number: A0879835A

PATIENT
  Age: 63 Year
  Sex: Female

DRUGS (2)
  1. NICORETTE [Suspect]
     Route: 002
  2. NICORETTE [Suspect]

REACTIONS (6)
  - PRODUCT QUALITY ISSUE [None]
  - DYSPEPSIA [None]
  - ERUCTATION [None]
  - NICOTINE DEPENDENCE [None]
  - DRUG ADMINISTRATION ERROR [None]
  - HYPERSENSITIVITY [None]
